FAERS Safety Report 16030201 (Version 1)
Quarter: 2019Q1

REPORT INFORMATION
  Report Type: Spontaneous
  Country: US (occurrence: US)
  Receive Date: 20190205
  Receipt Date: 20190205
  Transmission Date: 20190418
  Serious: No
  Sender: FDA-Public Use
  Company Number: None

PATIENT
  Age: 71 Year
  Sex: Male

DRUGS (1)
  1. EPCLUSA [Suspect]
     Active Substance: SOFOSBUVIR\VELPATASVIR
     Indication: HEPATITIS C
     Route: 048
     Dates: start: 20181215

REACTIONS (5)
  - Testicular swelling [None]
  - Diarrhoea [None]
  - Gingival pain [None]
  - Hernia [None]
  - Oral pain [None]

NARRATIVE: CASE EVENT DATE: 20190205
